FAERS Safety Report 6975463-8 (Version None)
Quarter: 2010Q3

REPORT INFORMATION
  Report Type: 
  Country: None (occurrence: None)
  Receive Date: 20100910
  Receipt Date: 20100901
  Transmission Date: 20110219
  Serious: Yes (Hospitalization)
  Sender: FDA-Public Use
  Company Number: ES-BRISTOL-MYERS SQUIBB COMPANY-15276793

PATIENT
  Age: 65 Year
  Sex: Male
  Weight: 76 kg

DRUGS (3)
  1. CETUXIMAB [Suspect]
     Indication: HEAD AND NECK CANCER
     Dosage: TEMP DISCONTINUED:23AUG2010 NO OF INF:12
     Route: 042
     Dates: start: 20100518, end: 20100823
  2. CISPLATIN [Suspect]
     Indication: HEAD AND NECK CANCER
     Dosage: RECENT DOSE:23AUG2010; NO OF INF:5
     Route: 042
     Dates: start: 20100518
  3. FLUOROURACIL [Suspect]
     Indication: HEAD AND NECK CANCER
     Dosage: RECENT INF:07JUN2010; NO OF INF:2 CONITNUOUS INF FROM DAY 1 TO  4 OF CYCLE
     Route: 042
     Dates: start: 20100518, end: 20100607

REACTIONS (1)
  - LOWER GASTROINTESTINAL HAEMORRHAGE [None]
